FAERS Safety Report 5004471-1 (Version None)
Quarter: 2006Q2

REPORT INFORMATION
  Report Type: 
  Country: None (occurrence: None)
  Receive Date: 20060511
  Receipt Date: 20060427
  Transmission Date: 20061013
  Serious: Yes (Other)
  Sender: FDA-Public Use
  Company Number: 2006BH008870

PATIENT
  Sex: Female

DRUGS (1)
  1. MORPHINE SULFATE [Suspect]
     Dosage: INTH
     Route: 037

REACTIONS (5)
  - DEVICE BREAKAGE [None]
  - MASS [None]
  - MONOPLEGIA [None]
  - NERVE INJURY [None]
  - PROCEDURAL COMPLICATION [None]
